FAERS Safety Report 23989845 (Version 2)
Quarter: 2024Q2

REPORT INFORMATION
  Report Type: Spontaneous
  Country: CA (occurrence: CA)
  Receive Date: 20240619
  Receipt Date: 20240624
  Transmission Date: 20240716
  Serious: Yes (Death, Hospitalization)
  Sender: FDA-Public Use
  Company Number: CA-BIOCON BIOLOGICS LIMITED-BBL2024004352

PATIENT

DRUGS (2)
  1. OGIVRI [Suspect]
     Active Substance: TRASTUZUMAB-DKST
     Indication: Ovarian epithelial cancer
     Dosage: 6 MG/KG EVERY 21 DAYS
     Route: 042
     Dates: start: 20240229
  2. OGIVRI [Suspect]
     Active Substance: TRASTUZUMAB-DKST
     Dosage: 6 MG/KG EVERY 21 DAYS
     Route: 042
     Dates: end: 20240523

REACTIONS (3)
  - Death [Fatal]
  - Intensive care [Unknown]
  - Therapy non-responder [Unknown]
